FAERS Safety Report 8839882 (Version 2)
Quarter: 2013Q1

REPORT INFORMATION
  Report Type: Spontaneous
  Country: ES (occurrence: None)
  Receive Date: 20121011
  Receipt Date: 20121109
  Transmission Date: 20140127
  Serious: Yes (Other)
  Sender: FDA-Public Use
  Company Number: APL-2012-00190

PATIENT
  Age: 76 Year
  Sex: Male

DRUGS (1)
  1. PECFENT [Suspect]
     Indication: CANCER PAIN
     Dates: start: 201105, end: 201105

REACTIONS (3)
  - Altered state of consciousness [None]
  - Drug clearance decreased [None]
  - Neurotoxicity [None]
